FAERS Safety Report 7572422-1 (Version None)
Quarter: 2011Q2

REPORT INFORMATION
  Report Type: 
  Country: None (occurrence: None)
  Receive Date: 20110624
  Receipt Date: 20110616
  Transmission Date: 20111010
  Serious: Yes (Hospitalization)
  Sender: FDA-Public Use
  Company Number: JP-GENENTECH-319559

PATIENT
  Sex: Female

DRUGS (9)
  1. AMLODIPINE [Concomitant]
     Indication: HYPERTENSION
     Dosage: 2.5 MG, QD
     Dates: start: 20060101
  2. ALLOPURINOL [Concomitant]
     Indication: HYPERURICAEMIA
     Dosage: 100 MG, BID
     Route: 048
     Dates: start: 20110322
  3. SULFAMETHOXAZOLE [Concomitant]
     Indication: INFECTION PROPHYLAXIS
     Dosage: 80 MG, QD
     Route: 048
     Dates: start: 20110322
  4. RITUXAN [Suspect]
     Indication: LYMPHOMA
     Dosage: 510 MG, UNK
     Route: 042
     Dates: start: 20110322, end: 20110414
  5. CLOBETASOL PROPIONATE [Concomitant]
     Indication: RASH MACULO-PAPULAR
     Dosage: UNK
     Route: 061
     Dates: start: 20110403
  6. STRONGER NEO-MINOPHAGEN C [Concomitant]
     Indication: LIVER DISORDER
     Dosage: 40 ML, QD
     Route: 042
     Dates: start: 20110422, end: 20110511
  7. BENDAMUSTINE HYDROCHLORIDE [Suspect]
     Indication: LYMPHOMA
     Dosage: 160 MG, UNK
     Route: 042
     Dates: start: 20110322, end: 20110414
  8. LANSOPRAZOLE [Concomitant]
     Indication: GASTRITIS
     Dosage: 15 MG, QD
     Route: 048
     Dates: start: 20110322
  9. ZOVIRAX [Concomitant]
     Indication: HERPES ZOSTER
     Dosage: 200 MG, BID
     Route: 048
     Dates: start: 20110322

REACTIONS (2)
  - CYTOMEGALOVIRUS INFECTION [None]
  - LIVER DISORDER [None]
